FAERS Safety Report 5093407-3 (Version None)
Quarter: 2006Q3

REPORT INFORMATION
  Report Type: 
  Country: None (occurrence: None)
  Receive Date: 20060828
  Receipt Date: 20060816
  Transmission Date: 20061208
  Serious: Yes (Hospitalization)
  Sender: FDA-Public Use
  Company Number: 2006-00915

PATIENT
  Age: 76 Year
  Sex: Female
  Weight: 69 kg

DRUGS (8)
  1. VELCADE [Suspect]
     Indication: MULTIPLE MYELOMA
     Dosage: SEE IMAGE
     Route: 042
     Dates: start: 20060221, end: 20060406
  2. VELCADE [Suspect]
     Indication: MULTIPLE MYELOMA
     Dosage: SEE IMAGE
     Route: 042
     Dates: start: 20060406, end: 20060510
  3. NADOLOL [Concomitant]
  4. PRESTOLE (HYDROCHLOROTHIAZIDE, TRIAMTERENE) [Concomitant]
  5. VINBURNINE (VINBURNINE) [Concomitant]
  6. RUTIN TAB [Concomitant]
  7. VALACYCLOVIR [Concomitant]
  8. TRAMADOL HCL [Concomitant]

REACTIONS (32)
  - ANOREXIA [None]
  - ARTHRALGIA [None]
  - ASTHENIA [None]
  - BLADDER DISTENSION [None]
  - BONE FISSURE [None]
  - BUTTOCK PAIN [None]
  - C-REACTIVE PROTEIN INCREASED [None]
  - COGNITIVE DISORDER [None]
  - CONSTIPATION [None]
  - DEHYDRATION [None]
  - DRY MOUTH [None]
  - FALL [None]
  - GAIT DISTURBANCE [None]
  - HAEMOGLOBIN DECREASED [None]
  - HYPONATRAEMIA [None]
  - LEUKOCYTOSIS [None]
  - LOGORRHOEA [None]
  - LYMPHADENOPATHY [None]
  - MEMORY IMPAIRMENT [None]
  - OEDEMA PERIPHERAL [None]
  - OSTEONECROSIS [None]
  - PNEUMOCOCCAL BACTERAEMIA [None]
  - PNEUMOCOCCAL INFECTION [None]
  - PNEUMOCOCCAL SEPSIS [None]
  - PNEUMONIA [None]
  - POST HERPETIC NEURALGIA [None]
  - PSYCHOMOTOR HYPERACTIVITY [None]
  - RENAL FAILURE [None]
  - SPEECH DISORDER [None]
  - THROMBOCYTOPENIA [None]
  - URINARY RETENTION [None]
  - URINARY TRACT INFECTION [None]
